FAERS Safety Report 6293695-1 (Version None)
Quarter: 2009Q3

REPORT INFORMATION
  Report Type: 
  Country: None (occurrence: None)
  Receive Date: 20090729
  Receipt Date: 20090724
  Transmission Date: 20100115
  Serious: Yes (Other)
  Sender: FDA-Public Use
  Company Number: 2009SP003287

PATIENT
  Age: 45 Year
  Sex: Male
  Weight: 102.5 kg

DRUGS (10)
  1. TEMOZOLOMIDE [Suspect]
     Indication: GLIOMA
     Dosage: 160 MG; ; PO
     Route: 048
     Dates: start: 20080626, end: 20090128
  2. CARBAMAZEPINE [Concomitant]
  3. ZOPICLONE [Concomitant]
  4. CIPRALEX [Concomitant]
  5. ASPIRIN [Concomitant]
  6. CRESTOR [Concomitant]
  7. MOUTHWASH [Concomitant]
  8. AMOXICILLIN [Concomitant]
  9. CORTISPORIN [Concomitant]
  10. LOTRIDERM (CLOTRIMAZOLE/BETAMETHASONE DIPROPIONATE) [Concomitant]

REACTIONS (4)
  - CD4 LYMPHOCYTES DECREASED [None]
  - GLOSSITIS [None]
  - OTITIS MEDIA [None]
  - STOMATITIS [None]
